FAERS Safety Report 10100766 (Version 1)
Quarter: 2014Q2

REPORT INFORMATION
  Report Type: Spontaneous
  Country: US (occurrence: US)
  Receive Date: 20140423
  Receipt Date: 20140423
  Transmission Date: 20141212
  Serious: No
  Sender: FDA-Public Use
  Company Number: US-009507513-1404USA011715

PATIENT
  Sex: Female

DRUGS (1)
  1. COPPERTONE WATER BABIES PURE + SIMPLE LOTION SPF 50 [Suspect]
     Dosage: UNK, UNKNOWN
     Route: 061
     Dates: start: 1992

REACTIONS (4)
  - Rash generalised [Unknown]
  - Adverse event [Unknown]
  - Off label use [Unknown]
  - Expired product administered [Unknown]
